FAERS Safety Report 6470968 (Version 12)
Quarter: 2013Q1

REPORT INFORMATION
  Report Type: Spontaneous
  Country: US (occurrence: US)
  Receive Date: 20071119
  Receipt Date: 20130102
  Transmission Date: 20140127
  Serious: Yes (Hospitalization, Congenital Anomaly, Other)
  Sender: FDA-Public Use
  Company Number: US-PFIZER INC-2007095295

PATIENT
  Age: 2 Day
  Sex: Female
  Weight: 3 kg

DRUGS (20)
  1. ZOLOFT [Suspect]
     Indication: DEPRESSION
     Dosage: 100 MG AND 50MG
     Route: 064
     Dates: start: 20040712, end: 200512
  2. ZOLOFT [Suspect]
     Indication: ANXIETY
  3. PROMETRIUM [Concomitant]
     Dosage: UNK
     Route: 064
  4. PRENATAL VITAMINS [Concomitant]
     Dosage: UNK
     Route: 064
  5. ADVIL [Concomitant]
     Dosage: UNK
     Route: 064
  6. TUMS [Concomitant]
     Dosage: UNK
     Route: 064
  7. COLACE [Concomitant]
     Dosage: UNK
     Route: 064
  8. MOTRIN [Concomitant]
     Dosage: UNK
     Route: 064
  9. SODIUM CHLORIDE [Concomitant]
     Dosage: UNK
     Route: 064
  10. PERCOCET [Concomitant]
     Dosage: UNK
     Route: 064
  11. DARVOCET [Concomitant]
     Dosage: UNK
     Route: 064
  12. TERBUTALINE [Concomitant]
     Dosage: UNK
     Route: 064
  13. RHOGAM [Concomitant]
     Dosage: UNK
     Route: 064
  14. ACETAMINOPHEN W/OXYCODONE [Concomitant]
     Dosage: UNK
     Route: 064
  15. CAMILA [Concomitant]
     Dosage: UNK
     Route: 064
  16. EPHEDRINE [Concomitant]
     Dosage: UNK
     Route: 064
  17. AMBIEN [Concomitant]
     Dosage: UNK
     Route: 064
  18. PROMETHAZINE [Concomitant]
     Dosage: UNK
     Route: 064
  19. RUBELLA VACCINE [Concomitant]
     Dosage: UNK
     Route: 064
  20. WELLBUTRIN [Concomitant]
     Dosage: UNK
     Route: 064

REACTIONS (8)
  - Foetal exposure during pregnancy [Unknown]
  - Ventricular septal defect [Recovered/Resolved]
  - Atrial septal defect [Recovered/Resolved]
  - Atrial septal defect [Recovered/Resolved]
  - Failure to thrive [Recovered/Resolved]
  - Cardiac murmur [Recovering/Resolving]
  - Right ventricular hypertrophy [Recovered/Resolved]
  - Eye movement disorder [Unknown]
